FAERS Safety Report 8350431-2 (Version None)
Quarter: 2012Q2

REPORT INFORMATION
  Report Type: 
  Country: None (occurrence: None)
  Receive Date: 20120510
  Receipt Date: 20120503
  Transmission Date: 20120825
  Serious: No
  Sender: FDA-Public Use
  Company Number: US-B.I. PHARMACEUTICALS,INC./RIDGEFIELD-2012-BP-10056BP

PATIENT

DRUGS (8)
  1. LISINOPRILA [Concomitant]
  2. PRADAXA [Suspect]
     Dosage: 300 MG
     Dates: start: 20110910, end: 20120315
  3. WARFARIN SODIUM [Concomitant]
  4. KOMBIGLYZE XR [Concomitant]
  5. ACTOS [Concomitant]
  6. GLIMEPIRIDE [Concomitant]
  7. ATENOLOL [Concomitant]
  8. ASPIRIN [Concomitant]

REACTIONS (3)
  - RENAL DISORDER [None]
  - BLOOD URINE PRESENT [None]
  - POLLAKIURIA [None]
